FAERS Safety Report 5594682-9 (Version None)
Quarter: 2008Q1

REPORT INFORMATION
  Report Type: 
  Country: None (occurrence: None)
  Receive Date: 20080117
  Receipt Date: 20080115
  Transmission Date: 20080703
  Serious: Yes (Other)
  Sender: FDA-Public Use
  Company Number: US-SP-2008-00140

PATIENT
  Age: 78 Year
  Sex: Male

DRUGS (2)
  1. BCG  THERAPEUTICS [Suspect]
     Indication: BLADDER CANCER
     Route: 043
  2. BCG  THERAPEUTICS [Suspect]
     Route: 043

REACTIONS (9)
  - BALANITIS [None]
  - CYSTITIS NONINFECTIVE [None]
  - GRANULOMA [None]
  - LYMPHADENOPATHY [None]
  - PENILE PAIN [None]
  - PENILE SWELLING [None]
  - PENILE ULCERATION [None]
  - SKIN NECROSIS [None]
  - SUPRAPUBIC PAIN [None]
